FAERS Safety Report 7223089-3 (Version None)
Quarter: 2011Q1

REPORT INFORMATION
  Report Type: 
  Country: None (occurrence: None)
  Receive Date: 20110112
  Receipt Date: 20100111
  Transmission Date: 20110831
  Serious: No
  Sender: FDA-Public Use
  Company Number: US-ALLERGAN-1000328US

PATIENT
  Sex: Female

DRUGS (4)
  1. VALIUM [Concomitant]
  2. AMBIEN [Concomitant]
  3. MULTI-VITAMINS [Concomitant]
  4. RESTASIS [Suspect]
     Indication: DRY EYE
     Dosage: UNK
     Dates: start: 20090801

REACTIONS (2)
  - EYELID OEDEMA [None]
  - FOREIGN BODY SENSATION IN EYES [None]
